FAERS Safety Report 9108814 (Version 1)
Quarter: 2013Q1

REPORT INFORMATION
  Report Type: Spontaneous
  Country: US (occurrence: US)
  Receive Date: 20130222
  Receipt Date: 20130222
  Transmission Date: 20140127
  Serious: No
  Sender: FDA-Public Use
  Company Number: US-PFIZER INC-2013065262

PATIENT
  Age: 24 Year
  Sex: Female

DRUGS (2)
  1. PRISTIQ [Suspect]
     Dosage: 50 MG, ONCE (SINGLE)
     Route: 048
     Dates: start: 20130219
  2. CLOZAPINE [Concomitant]
     Dosage: UNK

REACTIONS (6)
  - Agitation [Unknown]
  - Tachyphrenia [Unknown]
  - Irritability [Unknown]
  - Fear [Unknown]
  - Restlessness [Unknown]
  - Anxiety [Unknown]
